FAERS Safety Report 6746313-X (Version None)
Quarter: 2010Q2

REPORT INFORMATION
  Report Type: 
  Country: None (occurrence: None)
  Receive Date: 20100528
  Receipt Date: 20100517
  Transmission Date: 20101027
  Serious: Yes (Other)
  Sender: FDA-Public Use
  Company Number: US-PFIZER INC-2010062522

PATIENT
  Sex: Male
  Weight: 109.75 kg

DRUGS (14)
  1. CELEBREX [Suspect]
     Indication: ARTHRALGIA
     Dosage: 200 MG, 1X/DAY
     Route: 048
  2. ACTOS [Concomitant]
     Dosage: 30 MG,DAILY
  3. GLIMEPIRIDE [Concomitant]
     Dosage: 4 MG,DAILY
  4. GLUCOPHAGE [Concomitant]
     Dosage: 500 MG, 2X/DAY
  5. AMLODIPINE [Concomitant]
     Dosage: 10 MG,DAILY
  6. OMEPRAZOLE [Concomitant]
     Dosage: 140 MG,DAILY
  7. WARFARIN [Concomitant]
     Dosage: 5 MG,DAILY
  8. FUROSEMIDE [Concomitant]
     Dosage: 20 MG,DAILY
  9. POTASSIUM [Concomitant]
     Dosage: 20 MEQ,DAILY
  10. PRAVACHOL [Concomitant]
     Dosage: 40 MG,UNK
  11. TERAZOSIN [Concomitant]
     Dosage: 6 MG,DAILY
  12. ACETYLSALICYLIC ACID [Concomitant]
     Dosage: 325 MG,DAILY
  13. MELATONIN [Concomitant]
     Dosage: 6 MG, UNK
  14. AMBIEN [Concomitant]
     Dosage: UNK

REACTIONS (1)
  - ATRIAL FIBRILLATION [None]
